FAERS Safety Report 6314139-7 (Version None)
Quarter: 2009Q3

REPORT INFORMATION
  Report Type: 
  Country: None (occurrence: None)
  Receive Date: 20090817
  Receipt Date: 20090807
  Transmission Date: 20100115
  Serious: Yes (Hospitalization)
  Sender: FDA-Public Use
  Company Number: 2009002414

PATIENT
  Sex: Male

DRUGS (1)
  1. ERLOTINIB        (TABLET) (ERLOTINIB) [Suspect]
     Indication: NON-SMALL CELL LUNG CANCER
     Dosage: QD, ORAL
     Route: 048
     Dates: start: 20090420

REACTIONS (3)
  - BRONCHOPULMONARY ASPERGILLOSIS [None]
  - PULMONARY EMBOLISM [None]
  - RADIATION PNEUMONITIS [None]
